FAERS Safety Report 10308151 (Version 2)
Quarter: 2014Q3

REPORT INFORMATION
  Report Type: Report from Study
  Country: US (occurrence: US)
  Receive Date: 20140716
  Receipt Date: 20140716
  Transmission Date: 20150326
  Serious: Yes (Other)
  Sender: FDA-Public Use
  Company Number: US-PFIZER INC-US-WYE-H15140210

PATIENT
  Age: 50 Year
  Sex: Female
  Weight: 88.1 kg

DRUGS (9)
  1. DESVENLAFAXINE SUCCINATE MONOHYDRATE [Suspect]
     Active Substance: DESVENLAFAXINE
     Indication: MENOPAUSE
     Dosage: 100 MG, 1X/DAY
     Route: 048
     Dates: start: 20080910, end: 20090805
  2. CALCIUM [Concomitant]
     Active Substance: CALCIUM
     Dosage: UNK
     Route: 065
     Dates: start: 200706
  3. ATENOLOL. [Concomitant]
     Active Substance: ATENOLOL
     Dosage: UNK
     Route: 048
     Dates: start: 20090307
  4. LEVOTHYROXINE SODIUM. [Concomitant]
     Active Substance: LEVOTHYROXINE SODIUM
     Dosage: UNK
     Route: 065
     Dates: start: 2002
  5. MULTIVITAMINS, PLAIN [Concomitant]
     Active Substance: VITAMINS
     Route: 065
  6. DESVENLAFAXINE SUCCINATE MONOHYDRATE [Suspect]
     Active Substance: DESVENLAFAXINE
     Dosage: 25 MG, 1X/DAY
     Route: 048
     Dates: start: 20090813, end: 20090819
  7. DESVENLAFAXINE SUCCINATE MONOHYDRATE [Suspect]
     Active Substance: DESVENLAFAXINE
     Dosage: 50 MG, 1X/DAY
     Route: 048
     Dates: start: 20090806, end: 20090812
  8. OMEPRAZOLE. [Concomitant]
     Active Substance: OMEPRAZOLE
     Dosage: UNK
     Route: 065
     Dates: start: 20090403
  9. DESVENLAFAXINE SUCCINATE MONOHYDRATE [Suspect]
     Active Substance: DESVENLAFAXINE
     Indication: HOT FLUSH
     Dosage: 50 MG, 1X/DAY
     Route: 048
     Dates: start: 20080903, end: 20080909

REACTIONS (1)
  - Electrocardiogram T wave inversion [Not Recovered/Not Resolved]

NARRATIVE: CASE EVENT DATE: 20090805
